FAERS Safety Report 8838008 (Version 2)
Quarter: 2015Q2

REPORT INFORMATION
  Report Type: Report from Study
  Country: US (occurrence: US)
  Receive Date: 20121012
  Receipt Date: 20150629
  Transmission Date: 20150821
  Serious: Yes (Other)
  Sender: FDA-Public Use
  Company Number: US-ROCHE-1141251

PATIENT
  Sex: Male
  Weight: 48.18 kg

DRUGS (16)
  1. PROTROPIN [Suspect]
     Active Substance: SOMATREM
     Indication: CRANIOPHARYNGIOMA
     Dosage: DILUTED WITH 1 ML, (0.4 ML)
     Route: 058
  2. NUTROPIN [Suspect]
     Active Substance: SOMATROPIN
     Route: 058
  3. SYNTHROID [Concomitant]
     Active Substance: LEVOTHYROXINE SODIUM
  4. SOLU-CORTEF [Concomitant]
     Active Substance: HYDROCORTISONE SODIUM SUCCINATE
  5. PHENERGAN [Concomitant]
     Active Substance: PROMETHAZINE HYDROCHLORIDE
  6. TESTOSTERONE. [Concomitant]
     Active Substance: TESTOSTERONE
  7. PROTROPIN [Suspect]
     Active Substance: SOMATREM
     Indication: HYPOPITUITARISM
     Dosage: STRENGTH 10 MG/CM, DILUTED WITH 2.2 ML (INJECTION VOLUME 0.5 ML)
     Route: 058
  8. PROMETHAZINE HYDROCHLORIDE. [Concomitant]
     Active Substance: PROMETHAZINE HYDROCHLORIDE
  9. LEVOTHYROXINE SODIUM. [Concomitant]
     Active Substance: LEVOTHYROXINE SODIUM
  10. DESMOPRESSIN ACETATE. [Concomitant]
     Active Substance: DESMOPRESSIN ACETATE
  11. ANDRODERM [Concomitant]
     Active Substance: TESTOSTERONE
  12. NUTROPIN [Suspect]
     Active Substance: SOMATROPIN
     Route: 058
  13. HYDROCORTISONE SODIUM SUCCINATE [Concomitant]
     Active Substance: HYDROCORTISONE SODIUM SUCCINATE
  14. NUTROPIN [Suspect]
     Active Substance: SOMATROPIN
     Indication: HYPOPITUITARISM
     Route: 058
  15. NUTROPIN [Suspect]
     Active Substance: SOMATROPIN
     Route: 058
  16. DDAVP [Concomitant]
     Active Substance: DESMOPRESSIN ACETATE

REACTIONS (6)
  - Dyspnoea [Unknown]
  - Insulin-like growth factor decreased [Unknown]
  - Asthma [Unknown]
  - Cough [Unknown]
  - Rhinitis allergic [Unknown]
  - Fungal infection [Unknown]
